FAERS Safety Report 23422935 (Version 2)
Quarter: 2024Q1

REPORT INFORMATION
  Report Type: Spontaneous
  Country: US (occurrence: US)
  Receive Date: 20240119
  Receipt Date: 20240315
  Transmission Date: 20240409
  Serious: No
  Sender: FDA-Public Use
  Company Number: US-SA-SAC20240112000015

PATIENT
  Age: 42 Year
  Sex: Female
  Weight: 65 kg

DRUGS (1)
  1. FABRAZYME [Suspect]
     Active Substance: AGALSIDASE BETA
     Indication: Fabry^s disease
     Dosage: 65 MG, QOW
     Route: 042
     Dates: start: 202311

REACTIONS (3)
  - Fabry^s disease [Unknown]
  - Condition aggravated [Unknown]
  - Heart rate decreased [Unknown]
